FAERS Safety Report 6663184-0 (Version None)
Quarter: 2010Q2

REPORT INFORMATION
  Report Type: 
  Country: None (occurrence: None)
  Receive Date: 20100401
  Receipt Date: 20100319
  Transmission Date: 20101027
  Serious: No
  Sender: FDA-Public Use
  Company Number: PHHY2009BR43406

PATIENT
  Age: 42 Year
  Sex: Female

DRUGS (3)
  1. TRILEPTAL [Suspect]
     Dosage: 1/2 TABLET (600 MG), UNK
     Dates: start: 20090301
  2. CARBAMAZEPINE [Suspect]
     Indication: CONVULSION
     Dosage: 200 MG
  3. CARBAMAZEPINE [Suspect]
     Dosage: 400 MG DAILY

REACTIONS (5)
  - ABDOMINAL PAIN UPPER [None]
  - DIZZINESS [None]
  - HEADACHE [None]
  - MALAISE [None]
  - SOMNOLENCE [None]
